FAERS Safety Report 7939007-6 (Version None)
Quarter: 2011Q4

REPORT INFORMATION
  Report Type: 
  Country: None (occurrence: None)
  Receive Date: 20111124
  Receipt Date: 20111121
  Transmission Date: 20120403
  Serious: Yes (Hospitalization, Congenital Anomaly, Other)
  Sender: FDA-Public Use
  Company Number: US-PFIZER INC-2011151169

PATIENT
  Sex: Female
  Weight: 3.3 kg

DRUGS (3)
  1. XANAX [Concomitant]
     Dosage: 0.5 MG, 3X/DAY
     Route: 064
  2. ZOLOFT [Suspect]
     Dosage: 50 MG, 4X/DAY
     Route: 064
  3. AMPICILLIN [Concomitant]
     Dosage: UNK,
     Route: 064
     Dates: start: 19950215, end: 19950221

REACTIONS (36)
  - TIBIA FRACTURE [None]
  - OSTEOCHONDROSIS [None]
  - ASTHMA EXERCISE INDUCED [None]
  - GAIT DISTURBANCE [None]
  - ACNE [None]
  - DEPRESSION [None]
  - EAR PAIN [None]
  - VOCAL CORD DISORDER [None]
  - TALIPES [None]
  - GASTROOESOPHAGEAL REFLUX DISEASE [None]
  - FOOD ALLERGY [None]
  - DYSMENORRHOEA [None]
  - NAUSEA [None]
  - DIZZINESS [None]
  - MUSCULOSKELETAL PAIN [None]
  - VIRAL INFECTION [None]
  - FOETAL EXPOSURE DURING PREGNANCY [None]
  - PNEUMONIA [None]
  - LARYNGITIS [None]
  - ERYTHEMA [None]
  - CELLULITIS [None]
  - UPPER RESPIRATORY TRACT INFECTION [None]
  - HYPERSOMNIA [None]
  - SCOLIOSIS [None]
  - HAEMANGIOMA [None]
  - SINUSITIS [None]
  - BLOOD BILIRUBIN INCREASED [None]
  - PYOGENIC GRANULOMA [None]
  - INSOMNIA [None]
  - OBESITY [None]
  - CONGENITAL GENITAL MALFORMATION FEMALE [None]
  - LIGAMENT SPRAIN [None]
  - CONTUSION [None]
  - URTICARIA [None]
  - SOFT TISSUE DISORDER [None]
  - LARYNGOSPASM [None]
